FAERS Safety Report 4371299-5 (Version None)
Quarter: 2004Q2

REPORT INFORMATION
  Report Type: 
  Country: None (occurrence: None)
  Receive Date: 20040603
  Receipt Date: 20040520
  Transmission Date: 20050107
  Serious: Yes (Hospitalization)
  Sender: FDA-Public Use
  Company Number: US-JNJFOC-20040504676

PATIENT
  Age: 2 Year
  Sex: Female
  Weight: 14.9687 kg

DRUGS (2)
  1. CHILDREN'S TYLENOL SUSPENSION (ACETAMINOPHEN) SUSPENSION [Suspect]
     Indication: NASAL CONGESTION
     Dosage: 160 MG, 1 IN 1 TOTAL, ORAL
     Route: 048
     Dates: start: 20040517, end: 20040517
  2. SUDAFED 12 HOUR [Suspect]
     Indication: NASAL CONGESTION
     Dosage: 5 ML, 1 IN 1 TOTAL, ORAL
     Route: 048
     Dates: start: 20040517, end: 20040517

REACTIONS (2)
  - DRUG EFFECT DECREASED [None]
  - DRUG SCREEN POSITIVE [None]
